FAERS Safety Report 16299549 (Version 3)
Quarter: 2021Q4

REPORT INFORMATION
  Report Type: Spontaneous
  Country: US (occurrence: None)
  Receive Date: 20190510
  Receipt Date: 20211228
  Transmission Date: 20220304
  Serious: Yes (Other)
  Sender: FDA-Public Use
  Company Number: 2019SE62995

PATIENT
  Age: 48 Year
  Sex: Male
  Weight: 108.9 kg

DRUGS (38)
  1. NEXIUM [Suspect]
     Active Substance: ESOMEPRAZOLE MAGNESIUM
     Indication: Gastrooesophageal reflux disease
     Route: 048
     Dates: start: 199201, end: 200103
  2. NEXIUM [Suspect]
     Active Substance: ESOMEPRAZOLE MAGNESIUM
     Indication: Gastrooesophageal reflux disease
     Dosage: 20-40 MG
     Route: 048
     Dates: start: 20010220, end: 20121231
  3. NEXIUM [Suspect]
     Active Substance: ESOMEPRAZOLE MAGNESIUM
     Indication: Gastrooesophageal reflux disease
     Dosage: 20-40 MG ONCE A DAY
     Route: 048
     Dates: start: 20121217, end: 20160513
  4. NEXIUM [Suspect]
     Active Substance: ESOMEPRAZOLE MAGNESIUM
     Indication: Gastrooesophageal reflux disease
     Dosage: GENERIC (ESOMEPRAZOLE)
     Route: 065
     Dates: start: 20160302, end: 20180725
  5. PRILOSEC [Suspect]
     Active Substance: OMEPRAZOLE MAGNESIUM
     Indication: Gastrooesophageal reflux disease
     Route: 048
     Dates: start: 199201, end: 200103
  6. PRILOSEC [Suspect]
     Active Substance: OMEPRAZOLE MAGNESIUM
     Indication: Gastrooesophageal reflux disease
     Route: 048
     Dates: start: 19920101, end: 20010321
  7. PRILOSEC [Suspect]
     Active Substance: OMEPRAZOLE MAGNESIUM
     Indication: Gastrooesophageal reflux disease
     Route: 048
     Dates: start: 201101
  8. PRILOSEC [Suspect]
     Active Substance: OMEPRAZOLE MAGNESIUM
     Indication: Gastrooesophageal reflux disease
     Dosage: GENERIC (OMEPRAZOLE) 20-40 MG ONCE A DAY
     Route: 065
     Dates: start: 20110207, end: 20120315
  9. PRILOSEC [Suspect]
     Active Substance: OMEPRAZOLE MAGNESIUM
     Indication: Gastrooesophageal reflux disease
     Dosage: GENERIC (OMEPRAZOLE) 20-40 MG ONCE A DAY
     Route: 065
     Dates: start: 20160926, end: 20190313
  10. PRILOSEC [Suspect]
     Active Substance: OMEPRAZOLE MAGNESIUM
     Indication: Gastrooesophageal reflux disease
     Dosage: GENERIC (OMEPRAZOLE) 20-40 MG ONCE A DAY
     Route: 065
  11. LISINOPRIL [Concomitant]
     Active Substance: LISINOPRIL
     Indication: Hypertension
     Route: 065
     Dates: start: 2013
  12. CRESTOR [Concomitant]
     Active Substance: ROSUVASTATIN CALCIUM
     Indication: Blood cholesterol increased
     Route: 065
     Dates: start: 2014
  13. AMLODIPINE [Concomitant]
     Active Substance: AMLODIPINE BESYLATE
     Indication: Hypertension
     Route: 065
     Dates: start: 2014
  14. LOSARTAN [Concomitant]
     Active Substance: LOSARTAN
     Indication: Hypertension
     Route: 065
     Dates: start: 2012
  15. FUROSEMIDE [Concomitant]
     Active Substance: FUROSEMIDE
  16. FENOFIBRIC ACID [Concomitant]
     Active Substance: FENOFIBRIC ACID
  17. TRAZODONE HYDROCHLORIDE [Concomitant]
     Active Substance: TRAZODONE HYDROCHLORIDE
  18. CHLORTHALIDONE [Concomitant]
     Active Substance: CHLORTHALIDONE
  19. PERCOCET [Concomitant]
     Active Substance: ACETAMINOPHEN\OXYCODONE HYDROCHLORIDE
  20. METOPROLOL [Concomitant]
     Active Substance: METOPROLOL
  21. CLOPIDOGREL [Concomitant]
     Active Substance: CLOPIDOGREL BISULFATE
  22. TRINTELLIX [Concomitant]
     Active Substance: VORTIOXETINE HYDROBROMIDE
  23. BUPROPION [Concomitant]
     Active Substance: BUPROPION
  24. GABAPENTIN [Concomitant]
     Active Substance: GABAPENTIN
  25. CLOTRIMAZOLE [Concomitant]
     Active Substance: CLOTRIMAZOLE
  26. TRULICITY [Concomitant]
     Active Substance: DULAGLUTIDE
  27. TRESIBA [Concomitant]
     Active Substance: INSULIN DEGLUDEC
  28. HYDROXYZINE PAMOATE [Concomitant]
     Active Substance: HYDROXYZINE PAMOATE
  29. VITAMIN D3 [Concomitant]
     Active Substance: CHOLECALCIFEROL
  30. ZOLPIDEM [Concomitant]
     Active Substance: ZOLPIDEM TARTRATE
  31. ERGOCALCIFEROL [Concomitant]
     Active Substance: ERGOCALCIFEROL
  32. WEICHAI [Concomitant]
  33. JORAZEPAM [Concomitant]
  34. NIACIN [Concomitant]
     Active Substance: NIACIN
  35. TRAZODONE [Concomitant]
     Active Substance: TRAZODONE HYDROCHLORIDE
  36. IBUPROFEN [Concomitant]
     Active Substance: IBUPROFEN
  37. METAXALONE [Concomitant]
     Active Substance: METAXALONE
  38. ACETAMINOPHEN [Concomitant]
     Active Substance: ACETAMINOPHEN

REACTIONS (4)
  - Chronic kidney disease [Not Recovered/Not Resolved]
  - Renal failure [Unknown]
  - Chronic kidney disease-mineral and bone disorder [Unknown]
  - Gastrooesophageal reflux disease [Not Recovered/Not Resolved]

NARRATIVE: CASE EVENT DATE: 20150101
